FAERS Safety Report 5662563-8 (Version None)
Quarter: 2008Q1

REPORT INFORMATION
  Report Type: 
  Country: None (occurrence: None)
  Receive Date: 20080310
  Receipt Date: 20080310
  Transmission Date: 20080703
  Serious: Yes (Hospitalization)
  Sender: FDA-Public Use
  Company Number: None

PATIENT
  Age: 2 Year
  Sex: Female
  Weight: 13.1543 kg

DRUGS (1)
  1. TAMIFLU [Suspect]
     Indication: INFLUENZA
     Dosage: 1/2 TEASPOON EVERY 12 HOURS PO
     Route: 048
     Dates: start: 20080227, end: 20080228

REACTIONS (2)
  - COLD SWEAT [None]
  - HYPOTHERMIA [None]
